FAERS Safety Report 9632750 (Version 1)
Quarter: 2013Q4

REPORT INFORMATION
  Report Type: Spontaneous
  Country: GB (occurrence: GB)
  Receive Date: 20131018
  Receipt Date: 20131018
  Transmission Date: 20140711
  Serious: Yes (Other)
  Sender: FDA-Public Use
  Company Number: GB-GLAXOSMITHKLINE-B0929391A

PATIENT
  Age: 69 Year
  Sex: Female

DRUGS (6)
  1. DIGOXIN-SPECIFIC ANTIBODY FRAGMENTS [Suspect]
     Indication: ATRIAL FIBRILLATION
     Dosage: 250MCG PER DAY
     Route: 048
  2. DIGOXIN-SPECIFIC ANTIBODY FRAGMENTS [Suspect]
     Route: 048
  3. VEMURAFENIB [Suspect]
     Indication: METASTATIC MALIGNANT MELANOMA
     Route: 048
     Dates: start: 20121120
  4. ASPIRIN [Concomitant]
     Indication: ATRIAL FIBRILLATION
     Dosage: 75MG PER DAY
     Route: 048
  5. ATORVASTATIN [Concomitant]
     Indication: BLOOD CHOLESTEROL INCREASED
     Dosage: 20MG PER DAY
     Route: 048
  6. METOPROLOL [Concomitant]
     Indication: ATRIAL FIBRILLATION
     Dosage: 200MG PER DAY
     Route: 048

REACTIONS (3)
  - Arrhythmia [Unknown]
  - Cardioactive drug level increased [Recovering/Resolving]
  - Drug interaction [Unknown]
